FAERS Safety Report 21101102 (Version 6)
Quarter: 2022Q4

REPORT INFORMATION
  Report Type: Report from Study
  Country: US (occurrence: US)
  Receive Date: 20220719
  Receipt Date: 20221213
  Transmission Date: 20230113
  Serious: Yes (Other)
  Sender: FDA-Public Use
  Company Number: US-TAKEDA-2022TUS033592

PATIENT
  Age: 70 Year
  Sex: Female
  Weight: 55 kg

DRUGS (20)
  1. HUMAN IMMUNOGLOBULIN G [Suspect]
     Active Substance: HUMAN IMMUNOGLOBULIN G
     Indication: Immunodeficiency common variable
     Dosage: 30 GRAM, Q4WEEKS
     Route: 042
     Dates: start: 20220405
  2. HUMAN IMMUNOGLOBULIN G [Suspect]
     Active Substance: HUMAN IMMUNOGLOBULIN G
     Dosage: 35 GRAM, Q4WEEKS
     Route: 042
     Dates: start: 20220405
  3. ACETAMINOPHEN [Concomitant]
     Active Substance: ACETAMINOPHEN
     Route: 065
  4. DIPHENHYDRAMINE [Concomitant]
     Active Substance: DIPHENHYDRAMINE
     Route: 065
  5. SODIUM CHLORIDE [Concomitant]
     Active Substance: SODIUM CHLORIDE
     Route: 065
  6. EPINEPHRINE [Concomitant]
     Active Substance: EPINEPHRINE
     Route: 065
  7. Lmx [Concomitant]
     Route: 065
  8. AZASITE [Concomitant]
     Active Substance: AZITHROMYCIN MONOHYDRATE
     Route: 065
  9. REFRESH P.M. [Concomitant]
     Active Substance: MINERAL OIL\PETROLATUM
     Route: 061
  10. REFRESH LIQUIGEL [Concomitant]
     Active Substance: CARBOXYMETHYLCELLULOSE SODIUM
     Route: 061
  11. TRAVATAN Z [Concomitant]
     Active Substance: TRAVOPROST
     Route: 061
  12. BACITRACIN [Concomitant]
     Active Substance: BACITRACIN
     Route: 061
  13. MECLIZINE HYDROCHLORIDE [Concomitant]
     Active Substance: MECLIZINE HYDROCHLORIDE
     Route: 048
  14. BUPROPION HYDROCHLORIDE XL [Concomitant]
     Active Substance: BUPROPION HYDROCHLORIDE
     Route: 065
  15. LOTEMAX [Concomitant]
     Active Substance: LOTEPREDNOL ETABONATE
     Route: 061
  16. BESIVANCE [Concomitant]
     Active Substance: BESIFLOXACIN
     Route: 061
  17. OMEPRAZOLE [Concomitant]
     Active Substance: OMEPRAZOLE
     Route: 065
  18. ZIRGAN [Concomitant]
     Active Substance: GANCICLOVIR
     Route: 061
  19. ALEVE [Concomitant]
     Active Substance: NAPROXEN SODIUM
     Route: 065
  20. CIPROFLOXACIN\DEXAMETHASONE [Concomitant]
     Active Substance: CIPROFLOXACIN\DEXAMETHASONE
     Route: 065

REACTIONS (12)
  - Eye infection fungal [Unknown]
  - Head injury [Unknown]
  - Alopecia [Unknown]
  - Infusion site irritation [Unknown]
  - Eye infection [Unknown]
  - Eye infection viral [Unknown]
  - Retinal disorder [Unknown]
  - Herpes zoster [Unknown]
  - Infusion site haematoma [Unknown]
  - Dizziness [Recovering/Resolving]
  - Blood pressure increased [Unknown]
  - Headache [Recovering/Resolving]

NARRATIVE: CASE EVENT DATE: 20220930
